FAERS Safety Report 7353278-9 (Version None)
Quarter: 2011Q1

REPORT INFORMATION
  Report Type: 
  Country: None (occurrence: None)
  Receive Date: 20110310
  Receipt Date: 20110310
  Transmission Date: 20110831
  Serious: Yes (Other)
  Sender: FDA-Public Use
  Company Number: None

PATIENT
  Age: 69 Year
  Sex: Male
  Weight: 65.318 kg

DRUGS (2)
  1. METOPROLOL SUCCINATE [Suspect]
     Indication: BLOOD PRESSURE INCREASED
     Dosage: 25 MG QD PO
     Route: 048
     Dates: start: 20080201
  2. PRAVASTATIN SODIUM [Suspect]
     Indication: BLOOD CHOLESTEROL INCREASED
     Dosage: 20MG QHS PO
     Route: 048
     Dates: start: 20091201

REACTIONS (6)
  - CROHN'S DISEASE [None]
  - DISCOMFORT [None]
  - NAUSEA [None]
  - GASTROINTESTINAL ULCER [None]
  - POST PROCEDURAL INFECTION [None]
  - POST PROCEDURAL HAEMORRHAGE [None]
